FAERS Safety Report 8047648-3 (Version None)
Quarter: 2012Q1

REPORT INFORMATION
  Report Type: 
  Country: None (occurrence: None)
  Receive Date: 20120116
  Receipt Date: 20120109
  Transmission Date: 20120608
  Serious: Yes (Hospitalization, Other)
  Sender: FDA-Public Use
  Company Number: US-BAYER-2012-002270

PATIENT
  Age: 24 Year
  Sex: Female
  Weight: 75 kg

DRUGS (3)
  1. HYDROCHLOROTHIAZIDE [Concomitant]
     Indication: PRODUCT USED FOR UNKNOWN INDICATION
  2. THERAFLU FLU, COLD + COUGH [Concomitant]
     Indication: PRODUCT USED FOR UNKNOWN INDICATION
  3. ALKA-SELTZER PLUS COLD + COUGH LIQUID GELS [Suspect]
     Indication: PRODUCT USED FOR UNKNOWN INDICATION
     Dosage: 2 DF, BID
     Route: 048

REACTIONS (6)
  - EYE SWELLING [None]
  - EYELID FUNCTION DISORDER [None]
  - BRONCHITIS [None]
  - MYDRIASIS [None]
  - VISION BLURRED [None]
  - NAUSEA [None]
